FAERS Safety Report 9049289 (Version 1)
Quarter: 2013Q1

REPORT INFORMATION
  Report Type: Spontaneous
  Country: DE (occurrence: DE)
  Receive Date: 20130205
  Receipt Date: 20130205
  Transmission Date: 20140127
  Serious: Yes (Other)
  Sender: FDA-Public Use
  Company Number: DE-TEVA-382101GER

PATIENT
  Sex: Female
  Weight: 75 kg

DRUGS (4)
  1. PAROXETINE [Suspect]
     Indication: SCHIZOPHRENIA
     Dosage: 40 MILLIGRAM DAILY;
     Route: 048
     Dates: start: 20110918, end: 20120131
  2. LEPONEX [Suspect]
     Indication: SCHIZOPHRENIA
     Dosage: 400 MILLIGRAM DAILY;
     Route: 048
     Dates: start: 20110918, end: 20120131
  3. FOLSAEURE [Concomitant]
     Indication: PROPHYLAXIS OF NEURAL TUBE DEFECT
     Route: 048
     Dates: end: 20120131
  4. CYTOTEC [Concomitant]
     Indication: ABORTION INDUCED
     Route: 067
     Dates: start: 20120130, end: 20120131

REACTIONS (1)
  - Abortion induced [Unknown]
